FAERS Safety Report 9164661 (Version 2)
Quarter: 2013Q2

REPORT INFORMATION
  Report Type: Report from Study
  Country: JP (occurrence: JP)
  Receive Date: 20130315
  Receipt Date: 20130522
  Transmission Date: 20140414
  Serious: Yes (Death, Life-Threatening, Hospitalization)
  Sender: FDA-Public Use
  Company Number: JP-AMGEN-JPNCT2013018036

PATIENT
  Age: 80 Year
  Sex: Male
  Weight: 49 kg

DRUGS (30)
  1. DARBEPOETIN ALFA [Suspect]
     Indication: NEPHROGENIC ANAEMIA
     Dosage: 30 MUG, QD
     Route: 058
     Dates: start: 20110107, end: 20110107
  2. DARBEPOETIN ALFA [Suspect]
     Dosage: 30 MUG, QD
     Route: 058
     Dates: start: 20110218, end: 20110218
  3. DARBEPOETIN ALFA [Suspect]
     Dosage: 60 MUG, QD
     Route: 058
     Dates: start: 20110408, end: 20110408
  4. DARBEPOETIN ALFA [Suspect]
     Dosage: 60 MUG, QD
     Route: 058
     Dates: start: 20110506, end: 20110506
  5. DARBEPOETIN ALFA [Suspect]
     Dosage: 60 MUG, UNK
     Route: 058
     Dates: start: 20110610, end: 20110708
  6. DARBEPOETIN ALFA [Suspect]
     Dosage: 60 MUG, QD
     Route: 058
     Dates: start: 20110812, end: 20110812
  7. DARBEPOETIN ALFA [Suspect]
     Dosage: 60 MUG, QD
     Route: 058
     Dates: start: 20110930, end: 20110930
  8. DARBEPOETIN ALFA [Suspect]
     Dosage: 60 MUG, QD
     Route: 058
     Dates: start: 20111118, end: 20111118
  9. DARBEPOETIN ALFA [Suspect]
     Dosage: 60 MUG, QD
     Route: 058
     Dates: start: 20111202, end: 20111202
  10. DARBEPOETIN ALFA [Suspect]
     Dosage: 30 MUG, Q3WK
     Route: 058
     Dates: start: 20111222, end: 20120113
  11. DARBEPOETIN ALFA [Suspect]
     Dosage: 30 MUG, QD
     Route: 058
     Dates: start: 20120302, end: 20120302
  12. DARBEPOETIN ALFA [Suspect]
     Dosage: 60 MUG, QD
     Route: 058
     Dates: start: 20120420, end: 20120420
  13. DARBEPOETIN ALFA [Suspect]
     Dosage: 60 MUG, QD
     Route: 058
     Dates: start: 20120608, end: 20120608
  14. DARBEPOETIN ALFA [Suspect]
     Dosage: 60 MUG, QD
     Route: 058
     Dates: start: 20120726, end: 20120726
  15. DARBEPOETIN ALFA [Suspect]
     Dosage: 60 MUG, QD
     Route: 058
     Dates: start: 20120824, end: 20120824
  16. DARBEPOETIN ALFA [Suspect]
     Dosage: 60 MUG, QD
     Route: 058
     Dates: start: 20121005, end: 20121005
  17. DARBEPOETIN ALFA [Suspect]
     Dosage: 60 MUG, QD
     Route: 058
     Dates: start: 20121101, end: 20121101
  18. ROCALTROL [Concomitant]
     Dosage: UNK
     Route: 048
  19. ZYLORIC [Concomitant]
     Dosage: UNK
     Route: 048
  20. NU-LOTAN [Concomitant]
     Dosage: UNK
     Route: 048
  21. NORVASC [Concomitant]
     Dosage: UNK
     Route: 048
  22. MARZULENE-S [Concomitant]
     Dosage: UNK
     Route: 048
  23. ARTIST [Concomitant]
     Dosage: UNK
     Route: 048
  24. WARFARIN [Concomitant]
     Dosage: UNK
     Route: 048
  25. MOHRUS [Concomitant]
     Dosage: UNK
     Route: 062
  26. FLIVAS [Concomitant]
     Dosage: UNK
     Route: 048
  27. BIO-THREE [Concomitant]
     Dosage: UNK
     Route: 048
  28. SELARA [Concomitant]
     Dosage: UNK
     Route: 048
  29. DEPAS [Concomitant]
     Dosage: UNK
     Route: 048
  30. LASIX [Concomitant]
     Dosage: UNK
     Route: 048

REACTIONS (4)
  - Renal failure [Fatal]
  - Peripheral arterial occlusive disease [Fatal]
  - Gangrene [Fatal]
  - Cardiac failure congestive [Recovered/Resolved]
